FAERS Safety Report 8397880-4 (Version None)
Quarter: 2012Q2

REPORT INFORMATION
  Report Type: 
  Country: None (occurrence: None)
  Receive Date: 20120531
  Receipt Date: 20120529
  Transmission Date: 20120825
  Serious: Yes (Other)
  Sender: FDA-Public Use
  Company Number: PHHY2012AR034997

PATIENT
  Sex: Female

DRUGS (1)
  1. DIOVAN [Suspect]
     Indication: HYPERTENSION
     Dosage: DAILY1 DF, UNK
     Dates: start: 20120201

REACTIONS (4)
  - ARRHYTHMIA [None]
  - SPINAL DISORDER [None]
  - DIZZINESS [None]
  - BACK PAIN [None]
